FAERS Safety Report 5935409-8 (Version None)
Quarter: 2008Q4

REPORT INFORMATION
  Report Type: 
  Country: None (occurrence: None)
  Receive Date: 20081030
  Receipt Date: 20081016
  Transmission Date: 20090506
  Serious: Yes (Hospitalization)
  Sender: FDA-Public Use
  Company Number: US-ELI_LILLY_AND_COMPANY-US200810004548

PATIENT
  Sex: Female

DRUGS (5)
  1. FORTEO [Suspect]
     Indication: OSTEOPOROSIS
     Dosage: UNK, UNK
     Route: 058
     Dates: start: 20070801
  2. TYLENOL W/ CODEINE NO. 3 [Concomitant]
  3. LIBRIUM [Concomitant]
     Dosage: 10 MG, UNK
  4. DILTIAZEM HCL [Concomitant]
     Indication: BLOOD PRESSURE INCREASED
  5. SKELAXIN [Concomitant]
     Dosage: 400 MG, UNK

REACTIONS (3)
  - ANKLE FRACTURE [None]
  - FALL [None]
  - MEMORY IMPAIRMENT [None]
